FAERS Safety Report 21123481 (Version 4)
Quarter: 2022Q4

REPORT INFORMATION
  Report Type: Report from Study
  Country: ES (occurrence: ES)
  Receive Date: 20220724
  Receipt Date: 20221103
  Transmission Date: 20230113
  Serious: Yes (Hospitalization, Other)
  Sender: FDA-Public Use
  Company Number: ES-CELLTRION INC.-2022ES011584

PATIENT

DRUGS (4)
  1. RITUXIMAB [Suspect]
     Active Substance: RITUXIMAB
     Indication: Marginal zone lymphoma refractory
     Dosage: 375MG/M2 WEEKLY FOR CYCLE 1 AND DAY 1 FOR CYCLE 2 TO 5, RITUXIMAB PRIOR TO THE SERIOUS ADVERSE EVENT
     Route: 042
     Dates: start: 20220317
  2. TAFASITAMAB-CXIX [Suspect]
     Active Substance: TAFASITAMAB-CXIX
     Indication: Marginal zone lymphoma refractory
     Dosage: UNK
     Route: 042
     Dates: start: 20220317
  3. TAFASITAMAB-CXIX [Suspect]
     Active Substance: TAFASITAMAB-CXIX
     Dosage: UNK
     Route: 042
     Dates: start: 20220707
  4. LENALIDOMIDE [Suspect]
     Active Substance: LENALIDOMIDE
     Indication: Marginal zone lymphoma refractory
     Dosage: DAY 1 TO 21 FOR CYCLE 1 TO 12, SUBSEQUENT DOSE OF LENALIDOMIDE 15 MG ( DAY 1 TO 21 FOR CYCLE 1 TO 12
     Route: 048
     Dates: start: 20220317

REACTIONS (2)
  - Pneumonia [Recovered/Resolved]
  - Off label use [Unknown]

NARRATIVE: CASE EVENT DATE: 20220616
